FAERS Safety Report 11534007 (Version 2)
Quarter: 2015Q4

REPORT INFORMATION
  Report Type: Spontaneous
  Country: DE (occurrence: DE)
  Receive Date: 20150922
  Receipt Date: 20151006
  Transmission Date: 20160304
  Serious: Yes (Disabling)
  Sender: FDA-Public Use
  Company Number: DE-ROCHE-1636835

PATIENT
  Sex: Female

DRUGS (1)
  1. ROCEPHIN [Suspect]
     Active Substance: CEFTRIAXONE SODIUM
     Indication: BORRELIA INFECTION
     Dosage: DAYS
     Route: 042
     Dates: start: 201502

REACTIONS (1)
  - Rheumatoid arthritis [Not Recovered/Not Resolved]
